FAERS Safety Report 5704930-X (Version None)
Quarter: 2008Q2

REPORT INFORMATION
  Report Type: 
  Country: None (occurrence: None)
  Receive Date: 20080414
  Receipt Date: 20080402
  Transmission Date: 20081010
  Serious: Yes (Hospitalization)
  Sender: FDA-Public Use
  Company Number: FR-SANOFI-SYNTHELABO-A02200801139

PATIENT
  Sex: Female

DRUGS (9)
  1. GANFORT [Concomitant]
     Indication: DRUG USE FOR UNKNOWN INDICATION
     Route: 047
  2. NEXIUM [Concomitant]
     Indication: DRUG USE FOR UNKNOWN INDICATION
     Route: 048
  3. LUBENTYL [Concomitant]
     Indication: DRUG USE FOR UNKNOWN INDICATION
     Dosage: UNK
     Route: 048
  4. GARDENAL [Concomitant]
     Indication: DRUG USE FOR UNKNOWN INDICATION
     Route: 048
     Dates: end: 20080204
  5. GARDENAL [Concomitant]
     Dosage: ONE TABLET OF 100MG AND ONE TABLET OF 50 MG 150 MG
     Route: 048
     Dates: start: 20080205
  6. UNALFA [Concomitant]
     Indication: DRUG USE FOR UNKNOWN INDICATION
     Route: 048
  7. MS CONTIN [Suspect]
     Indication: BONE PAIN
     Dosage: 60 MG
     Route: 048
  8. MS CONTIN [Suspect]
     Route: 048
     Dates: end: 20080204
  9. KAYEXALATE [Suspect]
     Indication: HYPERKALAEMIA
     Route: 048
     Dates: end: 20080204

REACTIONS (2)
  - FAECALOMA [None]
  - HYPOKALAEMIA [None]
